FAERS Safety Report 7423758-6 (Version None)
Quarter: 2011Q2

REPORT INFORMATION
  Report Type: 
  Country: None (occurrence: None)
  Receive Date: 20110414
  Receipt Date: 20110414
  Transmission Date: 20111010
  Serious: No
  Sender: FDA-Public Use
  Company Number: None

PATIENT

DRUGS (1)
  1. FENTANYL [Suspect]
     Dosage: MARCH 22ND  29TH AND APRIL 1ST

REACTIONS (1)
  - PRODUCT ADHESION ISSUE [None]
